FAERS Safety Report 10489061 (Version 5)
Quarter: 2015Q2

REPORT INFORMATION
  Report Type: Spontaneous
  Country: AT (occurrence: AT)
  Receive Date: 20141002
  Receipt Date: 20150603
  Transmission Date: 20150821
  Serious: Yes (Hospitalization, Other)
  Sender: FDA-Public Use
  Company Number: PHHY2014AT126779

PATIENT
  Age: 39 Year
  Sex: Female

DRUGS (6)
  1. APREDNISLON [Concomitant]
     Active Substance: PREDNISOLONE
     Indication: RHEUMATOID ARTHRITIS
     Dosage: 25 MG, HALF DOSE PER DAY
     Route: 048
  2. GILENYA [Suspect]
     Active Substance: FINGOLIMOD HYDROCHLORIDE
     Indication: RELAPSING-REMITTING MULTIPLE SCLEROSIS
     Dosage: QD
     Route: 048
     Dates: start: 201312, end: 201407
  3. GILENYA [Suspect]
     Active Substance: FINGOLIMOD HYDROCHLORIDE
     Route: 065
     Dates: end: 201410
  4. GILENYA [Suspect]
     Active Substance: FINGOLIMOD HYDROCHLORIDE
     Dosage: UNK UKN, QD
     Route: 048
     Dates: start: 20140919, end: 20140921
  5. GILENYA [Suspect]
     Active Substance: FINGOLIMOD HYDROCHLORIDE
     Dosage: UNK
     Route: 065
     Dates: start: 201411
  6. ABILIFY [Concomitant]
     Active Substance: ARIPIPRAZOLE
     Indication: BIPOLAR DISORDER
     Dosage: 15 MG, HALF DOSE PER DAY
     Route: 048

REACTIONS (10)
  - Vertigo [Recovered/Resolved]
  - Bradycardia [Unknown]
  - Liver function test abnormal [Unknown]
  - Cardiac disorder [Recovered/Resolved]
  - Hypotonia [Recovering/Resolving]
  - Fatigue [Recovered/Resolved]
  - Anxiety disorder [Not Recovered/Not Resolved]
  - Sinus bradycardia [Recovering/Resolving]
  - Nausea [Recovered/Resolved]
  - Blood pressure decreased [Unknown]

NARRATIVE: CASE EVENT DATE: 20140919
